FAERS Safety Report 9339801 (Version 1)
Quarter: 2013Q2

REPORT INFORMATION
  Report Type: Spontaneous
  Country: US (occurrence: None)
  Receive Date: 20130607
  Receipt Date: 20130607
  Transmission Date: 20140414
  Serious: Yes (Other)
  Sender: FDA-Public Use
  Company Number: None

PATIENT
  Age: 58 Year
  Sex: Female
  Weight: 63.05 kg

DRUGS (1)
  1. LEVOFLOXACIN [Suspect]
     Indication: LUNG INFECTION
     Dates: start: 20130424, end: 20130501

REACTIONS (5)
  - Pain [None]
  - Arthralgia [None]
  - Back pain [None]
  - Dysstasia [None]
  - Gait disturbance [None]
